FAERS Safety Report 6692659-3 (Version None)
Quarter: 2010Q2

REPORT INFORMATION
  Report Type: 
  Country: None (occurrence: None)
  Receive Date: 20100422
  Receipt Date: 20100413
  Transmission Date: 20101027
  Serious: Yes (Other)
  Sender: FDA-Public Use
  Company Number: JP-PFIZER INC-2010047532

PATIENT

DRUGS (1)
  1. LIPITOR [Suspect]

REACTIONS (1)
  - INTERSTITIAL LUNG DISEASE [None]
